FAERS Safety Report 6228278-2 (Version None)
Quarter: 2009Q2

REPORT INFORMATION
  Report Type: 
  Country: None (occurrence: None)
  Receive Date: 20090612
  Receipt Date: 20090604
  Transmission Date: 20091009
  Serious: Yes (Other)
  Sender: FDA-Public Use
  Company Number: PHHY2009GB14553

PATIENT
  Sex: Male

DRUGS (2)
  1. GLEEVEC [Suspect]
     Dosage: 400MG MORNING  AND 400 MG IN THE EVENING
     Route: 048
     Dates: start: 20080417, end: 20090405
  2. ALCOHOL [Interacting]

REACTIONS (4)
  - CHROMOSOME ANALYSIS ABNORMAL [None]
  - DRUG INTERACTION [None]
  - THERAPEUTIC RESPONSE DECREASED [None]
  - TREATMENT NONCOMPLIANCE [None]
